FAERS Safety Report 11592347 (Version 1)
Quarter: 2015Q4

REPORT INFORMATION
  Report Type: Spontaneous
  Country: US (occurrence: US)
  Receive Date: 20151005
  Receipt Date: 20151005
  Transmission Date: 20160304
  Serious: Yes (Other)
  Sender: FDA-Public Use
  Company Number: US-JNJFOC-20150926444

PATIENT
  Age: 76 Year
  Sex: Male

DRUGS (3)
  1. NAPROXEN. [Suspect]
     Active Substance: NAPROXEN
     Indication: PRODUCT USED FOR UNKNOWN INDICATION
     Route: 065
  2. IBUPROFEN. [Suspect]
     Active Substance: IBUPROFEN
     Indication: PRODUCT USED FOR UNKNOWN INDICATION
     Route: 065
  3. IBUPROFEN. [Suspect]
     Active Substance: IBUPROFEN
     Route: 065

REACTIONS (10)
  - Glomerulonephritis membranous [Unknown]
  - Lung consolidation [None]
  - Diarrhoea [None]
  - Strongyloidiasis [None]
  - Eosinophilia [Unknown]
  - Renal failure [None]
  - Haemodialysis [None]
  - Sepsis [None]
  - Pleural effusion [None]
  - Respiratory failure [None]
